FAERS Safety Report 7105319-1 (Version None)
Quarter: 2010Q4

REPORT INFORMATION
  Report Type: 
  Country: None (occurrence: None)
  Receive Date: 20101116
  Receipt Date: 20101104
  Transmission Date: 20110411
  Serious: Yes (Hospitalization, Other)
  Sender: FDA-Public Use
  Company Number: ES-ELI_LILLY_AND_COMPANY-ES201011001755

PATIENT
  Sex: Female
  Weight: 76 kg

DRUGS (2)
  1. FORTEO [Suspect]
     Indication: FRACTURE
     Dosage: 20 UG, DAILY (1/D)
     Route: 058
     Dates: start: 20100216, end: 20100922
  2. PROTELOS [Concomitant]
     Dosage: 1 D/F, DAILY (1/D)
     Route: 065

REACTIONS (3)
  - FRACTURE MALUNION [None]
  - OFF LABEL USE [None]
  - OSTEONECROSIS [None]
